FAERS Safety Report 20190395 (Version 1)
Quarter: 2021Q4

REPORT INFORMATION
  Report Type: Report from Study
  Country: US (occurrence: US)
  Receive Date: 20211215
  Receipt Date: 20211215
  Transmission Date: 20220303
  Serious: Yes (Hospitalization)
  Sender: FDA-Public Use
  Company Number: US-BAXTER-2021BAX039498

PATIENT
  Sex: Female
  Weight: 59.247 kg

DRUGS (19)
  1. CYCLOPHOSPHAMIDE [Suspect]
     Active Substance: CYCLOPHOSPHAMIDE
     Indication: Product used for unknown indication
     Dosage: TOTAL DOSE ADMINISTERED THIS COURSE (DOSE): 1660 MG
     Route: 065
     Dates: start: 20211025, end: 20211025
  2. DOXIL [Suspect]
     Active Substance: DOXORUBICIN HYDROCHLORIDE
     Indication: Product used for unknown indication
     Dosage: TOTAL DOSE ADMINISTERED THIS COURSE (DOSE): 126 MG
     Route: 065
     Dates: start: 20210920, end: 20211004
  3. CYTARABINE [Suspect]
     Active Substance: CYTARABINE
     Indication: Product used for unknown indication
     Dosage: TOTAL DOSE ADMINISTERED THIS COURSE (DOSE): 1000 MG
     Dates: start: 20211025, end: 20211105
  4. INOTUZUMAB OZOGAMICIN [Suspect]
     Active Substance: INOTUZUMAB OZOGAMICIN
     Indication: Product used for unknown indication
     Route: 065
     Dates: start: 20210308, end: 20210412
  5. METHOTREXATE SODIUM [Suspect]
     Active Substance: METHOTREXATE SODIUM
     Indication: Product used for unknown indication
     Dosage: TOTAL DOSE ADMINISTERED THIS COURSE (DOSE): 30 MG,
     Route: 065
     Dates: start: 20210920, end: 20211025
  6. RITUXIMAB [Suspect]
     Active Substance: RITUXIMAB
     Indication: Product used for unknown indication
     Dosage: TOTAL DOSE ADMINISTERED THIS COURSE (DOSE): 1245 MG
     Route: 065
     Dates: start: 20210920, end: 20210927
  7. VINCRISTINE SULFATE [Suspect]
     Active Substance: VINCRISTINE SULFATE
     Indication: Product used for unknown indication
     Dosage: TOTAL DOSE ADMINISTERED THIS COURSE (DOSE): 10 MG,
     Route: 065
     Dates: start: 20210920, end: 20211115
  8. DEXAMETHASONE [Suspect]
     Active Substance: DEXAMETHASONE
     Indication: Product used for unknown indication
     Dosage: TOTAL DOSE ADMINISTERED THIS COURSE (DOSE): 280 MG
     Route: 065
     Dates: start: 20210920, end: 20211017
  9. MERCAPTOPURINE [Suspect]
     Active Substance: MERCAPTOPURINE
     Indication: Product used for unknown indication
     Route: 065
     Dates: start: 20210503, end: 20210622
  10. ONCASPAR [Suspect]
     Active Substance: PEGASPARGASE
     Indication: Product used for unknown indication
     Dosage: TOTAL DOSE ADMINISTERED THIS COURSE (DOSE): 6600 UNIT
     Route: 065
     Dates: start: 20210923, end: 20211108
  11. THIOGUANINE [Suspect]
     Active Substance: THIOGUANINE
     Indication: Product used for unknown indication
     Dosage: TOTAL DOSE ADMINISTERED THIS COURSE (DOSE): 1120 MG
     Route: 065
     Dates: start: 20211025, end: 20211107
  12. LORAZEPAM [Concomitant]
     Active Substance: LORAZEPAM
     Indication: Product used for unknown indication
     Route: 065
     Dates: start: 20211116
  13. CEFEPIME [Concomitant]
     Active Substance: CEFEPIME HYDROCHLORIDE
     Indication: Product used for unknown indication
     Route: 042
     Dates: start: 20211116
  14. MICAFUNGIN [Concomitant]
     Active Substance: MICAFUNGIN
     Indication: Product used for unknown indication
     Route: 065
     Dates: start: 20211118
  15. MICAFUNGIN [Concomitant]
     Active Substance: MICAFUNGIN
     Dates: start: 20211118
  16. VANCOMYCIN [Concomitant]
     Active Substance: VANCOMYCIN
     Indication: Product used for unknown indication
     Route: 065
  17. FLAGYL [Concomitant]
     Active Substance: METRONIDAZOLE\METRONIDAZOLE HYDROCHLORIDE
     Indication: Product used for unknown indication
     Route: 065
  18. ATIVAN [Concomitant]
     Active Substance: LORAZEPAM
     Indication: Nausea
     Route: 065
  19. ZYPREXA [Concomitant]
     Active Substance: OLANZAPINE
     Indication: Nausea
     Route: 065

REACTIONS (1)
  - Febrile neutropenia [Recovering/Resolving]

NARRATIVE: CASE EVENT DATE: 20211116
